FAERS Safety Report 25103936 (Version 1)
Quarter: 2025Q1

REPORT INFORMATION
  Report Type: Spontaneous
  Country: MX (occurrence: MX)
  Receive Date: 20250321
  Receipt Date: 20250321
  Transmission Date: 20250409
  Serious: Yes (Hospitalization, Other)
  Sender: NOVITIUM PHARMA
  Company Number: MX-NOVITIUMPHARMA-2025MXNVP00677

PATIENT
  Age: 22 Year
  Sex: Female

DRUGS (7)
  1. DEXAMETHASONE [Suspect]
     Active Substance: DEXAMETHASONE
     Indication: Thrombotic microangiopathy
  2. CEPHALEXIN [Concomitant]
     Active Substance: CEPHALEXIN
     Indication: Pyrexia
  3. CEPHALEXIN [Concomitant]
     Active Substance: CEPHALEXIN
     Indication: Evidence based treatment
  4. ASPIRIN [Concomitant]
     Active Substance: ASPIRIN
     Indication: Headache
  5. ASPIRIN [Concomitant]
     Active Substance: ASPIRIN
     Indication: Photopsia
  6. ACETAMINOPHEN [Concomitant]
     Active Substance: ACETAMINOPHEN
     Indication: Headache
  7. ACETAMINOPHEN [Concomitant]
     Active Substance: ACETAMINOPHEN
     Indication: Photopsia

REACTIONS (7)
  - Foetal death [Unknown]
  - Premature separation of placenta [Unknown]
  - Pseudomembranous colitis [Unknown]
  - Staphylococcal bacteraemia [Unknown]
  - Urinary tract infection [Unknown]
  - Vaginal haemorrhage [Unknown]
  - Exposure during pregnancy [Unknown]
